FAERS Safety Report 14079970 (Version 2)
Quarter: 2017Q4

REPORT INFORMATION
  Report Type: Spontaneous
  Country: BE (occurrence: BE)
  Receive Date: 20171012
  Receipt Date: 20171026
  Transmission Date: 20180321
  Serious: Yes (Congenital Anomaly)
  Sender: FDA-Public Use
  Company Number: BE-TAKEDA-2017TUS020895

PATIENT

DRUGS (1)
  1. ENTYVIO [Suspect]
     Active Substance: VEDOLIZUMAB
     Indication: PRODUCT USED FOR UNKNOWN INDICATION
     Dosage: UNK
     Route: 065

REACTIONS (3)
  - Transposition of the great vessels [Unknown]
  - Double outlet right ventricle [Unknown]
  - Ventricular septal defect [Unknown]
